FAERS Safety Report 8286441-3 (Version None)
Quarter: 2012Q2

REPORT INFORMATION
  Report Type: 
  Country: None (occurrence: None)
  Receive Date: 20120416
  Receipt Date: 20120410
  Transmission Date: 20120825
  Serious: Yes (Other)
  Sender: FDA-Public Use
  Company Number: DE-PFIZER INC-2012088891

PATIENT
  Age: 41 Year
  Sex: Male
  Weight: 104 kg

DRUGS (2)
  1. AMPICILLIN AND SULBACTAM [Suspect]
     Indication: DIVERTICULITIS
     Dosage: 1.5 G, 3X/DAY
     Route: 042
     Dates: start: 20111009, end: 20111010
  2. CIPROFLOXACIN HCL [Suspect]
     Indication: DRUG RASH WITH EOSINOPHILIA AND SYSTEMIC SYMPTOMS
     Dosage: 500 MG, UNK
     Route: 048
     Dates: start: 20111011, end: 20111012

REACTIONS (4)
  - LIP SWELLING [None]
  - DYSARTHRIA [None]
  - RASH [None]
  - SWOLLEN TONGUE [None]
